FAERS Safety Report 5179776-4 (Version None)
Quarter: 2006Q4

REPORT INFORMATION
  Report Type: 
  Country: None (occurrence: None)
  Receive Date: 20061212
  Receipt Date: 20061129
  Transmission Date: 20070319
  Serious: Yes (Other)
  Sender: FDA-Public Use
  Company Number: 2006149343

PATIENT
  Age: 83 Year
  Sex: Female

DRUGS (1)
  1. MIGLITOL TABLET (MIGLITOL) [Suspect]
     Indication: DIABETES MELLITUS
     Dosage: 75 MG, ORAL
     Route: 048
     Dates: start: 20061125, end: 20061125

REACTIONS (1)
  - TREMOR [None]
